FAERS Safety Report 23578029 (Version 9)
Quarter: 2024Q4

REPORT INFORMATION
  Report Type: Report from Study
  Country: MX (occurrence: MX)
  Receive Date: 20240229
  Receipt Date: 20241231
  Transmission Date: 20250115
  Serious: Yes (Other)
  Sender: NOVARTIS
  Company Number: MX-002147023-NVSC2024MX041457

PATIENT
  Age: 74 Year
  Sex: Female
  Weight: 53.5 kg

DRUGS (11)
  1. KISQALI [Suspect]
     Active Substance: RIBOCICLIB
     Indication: Breast cancer
     Dosage: 3 DOSAGE FORM, QD (600 MG) (ONCE DAILY / EVERY 24 HOURS)
     Route: 048
     Dates: start: 202310, end: 202401
  2. KISQALI [Suspect]
     Active Substance: RIBOCICLIB
     Dosage: 2 DOSAGE FORM (EVERY 24 HOURS)
     Route: 048
     Dates: start: 202401
  3. KISQALI [Suspect]
     Active Substance: RIBOCICLIB
     Dosage: 1 DOSAGE FORM, Q24H
     Route: 048
  4. KISQALI [Suspect]
     Active Substance: RIBOCICLIB
     Dosage: 1 DOSAGE FORM, QD (ONCE A DAY  / IN THE  MORNING)
     Route: 048
  5. KISQALI [Suspect]
     Active Substance: RIBOCICLIB
     Dosage: 3 DOSAGE FORM, UNKNOWN
     Route: 065
  6. KISQALI [Suspect]
     Active Substance: RIBOCICLIB
     Dosage: 1 DOSAGE FORM, QD
     Route: 048
     Dates: start: 202310
  7. KISQALI [Suspect]
     Active Substance: RIBOCICLIB
     Dosage: 1 DOSAGE FORM, QD
     Route: 048
     Dates: start: 2023
  8. LETROZOLE [Suspect]
     Active Substance: LETROZOLE
     Indication: Product used for unknown indication
     Dosage: UNK
     Route: 065
  9. TRAMADOL [Suspect]
     Active Substance: TRAMADOL
     Indication: Pain
     Dosage: UNK
     Route: 065
  10. KETOROLAC [Suspect]
     Active Substance: KETOROLAC TROMETHAMINE
     Indication: Pain
     Dosage: UNK
     Route: 065
  11. CALCIUM [Concomitant]
     Active Substance: CALCIUM
     Indication: Product used for unknown indication
     Dosage: UNK
     Route: 065
     Dates: start: 202401

REACTIONS (51)
  - Pain [Unknown]
  - Nausea [Not Recovered/Not Resolved]
  - Gastric ulcer [Not Recovered/Not Resolved]
  - Eating disorder symptom [Unknown]
  - Weight decreased [Unknown]
  - Colitis [Unknown]
  - Metastases to bone [Unknown]
  - Kidney infection [Unknown]
  - Bone cancer [Unknown]
  - Malaise [Not Recovered/Not Resolved]
  - Ulcer [Recovered/Resolved]
  - Hernia [Unknown]
  - Blood pressure decreased [Unknown]
  - Blood pressure increased [Unknown]
  - Abdominal pain upper [Recovered/Resolved]
  - Diarrhoea [Not Recovered/Not Resolved]
  - Vomiting [Not Recovered/Not Resolved]
  - Intentional underdose [Unknown]
  - Dyspnoea [Unknown]
  - Hypertension [Unknown]
  - Fatigue [Unknown]
  - Cystitis noninfective [Unknown]
  - Dyschezia [Unknown]
  - Pharyngitis [Unknown]
  - Oropharyngeal pain [Unknown]
  - Aphthous ulcer [Unknown]
  - Gastrooesophageal reflux disease [Unknown]
  - Gastrointestinal disorder [Unknown]
  - Feeling abnormal [Unknown]
  - Obesity [Unknown]
  - Vertigo [Unknown]
  - Drug intolerance [Unknown]
  - Bone pain [Not Recovered/Not Resolved]
  - Headache [Not Recovered/Not Resolved]
  - Arthralgia [Unknown]
  - Constipation [Unknown]
  - Discomfort [Unknown]
  - Onychoclasis [Unknown]
  - Dysphagia [Unknown]
  - Cardiac disorder [Unknown]
  - Dyspepsia [Unknown]
  - Pain in extremity [Unknown]
  - Gait disturbance [Unknown]
  - Hiatus hernia [Unknown]
  - Pyrexia [Recovered/Resolved]
  - Feeding disorder [Unknown]
  - Dizziness [Unknown]
  - Somnolence [Unknown]
  - Lymphadenitis [Recovered/Resolved]
  - Anxiety [Recovered/Resolved]
  - Anaemia [Recovered/Resolved]

NARRATIVE: CASE EVENT DATE: 20231001
